FAERS Safety Report 15237187 (Version 1)
Quarter: 2018Q3

REPORT INFORMATION
  Report Type: Spontaneous
  Country: US (occurrence: US)
  Receive Date: 20180710
  Receipt Date: 20180710
  Transmission Date: 20181010
  Serious: Yes (Death)
  Sender: FDA-Public Use
  Company Number: None

PATIENT
  Age: 64 Year
  Sex: Female

DRUGS (10)
  1. LISINOPRIL. [Concomitant]
     Active Substance: LISINOPRIL
  2. LORAZEPAM. [Concomitant]
     Active Substance: LORAZEPAM
  3. ONDANSERTRON [Concomitant]
  4. FENTANYL. [Concomitant]
     Active Substance: FENTANYL
  5. HYDROCODO/APAP [Concomitant]
  6. SULFATE [Concomitant]
  7. ATORVASTATIN [Concomitant]
     Active Substance: ATORVASTATIN
  8. MULTIVITAMIN [Concomitant]
     Active Substance: VITAMINS
  9. MORPHINE [Concomitant]
     Active Substance: MORPHINE
  10. IBRANCE [Suspect]
     Active Substance: PALBOCICLIB
     Indication: BREAST CANCER FEMALE
     Dosage: ?          OTHER FREQUENCY:QD 21/28 DAYS;?
     Route: 048
     Dates: start: 20170304, end: 20180619

REACTIONS (1)
  - Death [None]

NARRATIVE: CASE EVENT DATE: 20180619
